FAERS Safety Report 14524717 (Version 6)
Quarter: 2018Q3

REPORT INFORMATION
  Report Type: Report from Study
  Country: US (occurrence: US)
  Receive Date: 20180213
  Receipt Date: 20180914
  Transmission Date: 20181010
  Serious: Yes (Other)
  Sender: FDA-Public Use
  Company Number: US-MALLINCKRODT-T201800481

PATIENT
  Age: 52 Year
  Sex: Female

DRUGS (3)
  1. REPOSITORY CORTICOTROPIN INJECTION [Suspect]
     Active Substance: CORTICOTROPIN
     Dosage: 80 UNITS/1 ML, 2 TIMES PER WEEK (WEDNESDAY/SATURDAY)
     Route: 030
     Dates: end: 20180515
  2. PREDNISONE. [Concomitant]
     Active Substance: PREDNISONE
     Indication: PRODUCT USED FOR UNKNOWN INDICATION
     Dosage: UNK
     Route: 065
  3. REPOSITORY CORTICOTROPIN INJECTION [Suspect]
     Active Substance: CORTICOTROPIN
     Indication: SARCOIDOSIS
     Dosage: 80 UNITS / 1 ML, 2 TIMES PER WEEK
     Route: 030
     Dates: start: 20170920

REACTIONS (12)
  - Bronchitis [Not Recovered/Not Resolved]
  - Dyspnoea [Not Recovered/Not Resolved]
  - Cellulitis [Not Recovered/Not Resolved]
  - Fatigue [Not Recovered/Not Resolved]
  - Gastroenteritis viral [Not Recovered/Not Resolved]
  - Chest pain [Unknown]
  - Drug dose omission [Not Recovered/Not Resolved]
  - Hypersomnia [Unknown]
  - Myalgia [Not Recovered/Not Resolved]
  - Injection site irritation [Not Recovered/Not Resolved]
  - Feeling abnormal [Not Recovered/Not Resolved]
  - Memory impairment [Not Recovered/Not Resolved]

NARRATIVE: CASE EVENT DATE: 20180204
